FAERS Safety Report 7518582-X (Version None)
Quarter: 2011Q2

REPORT INFORMATION
  Report Type: 
  Country: None (occurrence: None)
  Receive Date: 20110602
  Receipt Date: 20110525
  Transmission Date: 20111010
  Serious: Yes (Death, Other)
  Sender: FDA-Public Use
  Company Number: US-NOVOPROD-328926

PATIENT
  Age: 58 Year
  Sex: Female

DRUGS (2)
  1. WARFARIN SODIUM [Concomitant]
  2. NOVOSEVEN [Suspect]
     Indication: HAEMORRHAGE INTRACRANIAL
     Dosage: 4.8 MG

REACTIONS (1)
  - MYOCARDIAL INFARCTION [None]
